FAERS Safety Report 11287899 (Version 2)
Quarter: 2015Q3

REPORT INFORMATION
  Report Type: Spontaneous
  Country: JP (occurrence: JP)
  Receive Date: 20150721
  Receipt Date: 20150722
  Transmission Date: 20151125
  Serious: No
  Sender: FDA-Public Use
  Company Number: JP-ELI_LILLY_AND_COMPANY-JP201507005971

PATIENT
  Age: 49 Year
  Sex: Female

DRUGS (7)
  1. PURSENIDE [Concomitant]
     Active Substance: SENNOSIDES A AND B
     Route: 048
  2. CERCINE [Concomitant]
     Active Substance: DIAZEPAM
     Route: 048
  3. LUNESTA [Concomitant]
     Active Substance: ESZOPICLONE
     Route: 048
  4. CYMBALTA [Suspect]
     Active Substance: DULOXETINE HYDROCHLORIDE
     Indication: DEPRESSION
     Dosage: 20 MG, QD
     Route: 048
     Dates: start: 20150314, end: 20150328
  5. RIZE                               /00624801/ [Concomitant]
     Active Substance: CLOTIAZEPAM
     Route: 048
  6. BENZALIN                           /00036201/ [Concomitant]
     Active Substance: NITRAZEPAM
     Route: 048
  7. CYMBALTA [Suspect]
     Active Substance: DULOXETINE HYDROCHLORIDE
     Dosage: 40 MG, QD
     Route: 048
     Dates: start: 20150329, end: 201504

REACTIONS (2)
  - Blister [Recovering/Resolving]
  - Hepatic function abnormal [Recovering/Resolving]

NARRATIVE: CASE EVENT DATE: 201504
